FAERS Safety Report 7251712-6 (Version None)
Quarter: 2011Q1

REPORT INFORMATION
  Report Type: 
  Country: None (occurrence: None)
  Receive Date: 20110128
  Receipt Date: 20110121
  Transmission Date: 20110831
  Serious: Yes (Other)
  Sender: FDA-Public Use
  Company Number: US-GENENTECH-311551

PATIENT
  Sex: Female
  Weight: 44.898 kg

DRUGS (3)
  1. LUCENTIS [Suspect]
     Indication: MACULAR DEGENERATION
     Dosage: 0.5 MG, UNK
     Route: 031
     Dates: start: 20100922
  2. VEGF TRAP [Suspect]
     Indication: MACULAR DEGENERATION
     Dosage: UNK
     Route: 031
     Dates: start: 20100602
  3. VEGF TRAP [Suspect]
     Dosage: UNK
     Route: 031
     Dates: start: 20090507, end: 20100428

REACTIONS (1)
  - UVEITIS [None]
